FAERS Safety Report 25150249 (Version 1)
Quarter: 2025Q2

REPORT INFORMATION
  Report Type: Spontaneous
  Country: SK (occurrence: SK)
  Receive Date: 20250402
  Receipt Date: 20250402
  Transmission Date: 20250717
  Serious: Yes (Hospitalization, Other)
  Sender: TAKEDA
  Company Number: SK-JNJFOC-20250366682

PATIENT
  Age: 80 Year
  Sex: Female

DRUGS (3)
  1. VELCADE [Suspect]
     Active Substance: BORTEZOMIB
     Indication: Plasma cell myeloma
  2. DARZALEX [Suspect]
     Active Substance: DARATUMUMAB
     Indication: Plasma cell myeloma
  3. MELPHALAN [Suspect]
     Active Substance: MELPHALAN
     Indication: Plasma cell myeloma

REACTIONS (10)
  - Hospitalisation [Unknown]
  - Plasma cell myeloma refractory [Unknown]
  - COVID-19 [Unknown]
  - Osteomyelitis [Unknown]
  - Hip fracture [Unknown]
  - Cervical vertebral fracture [Unknown]
  - Rib fracture [Unknown]
  - Shoulder fracture [Unknown]
  - Pulmonary embolism [Unknown]
  - Hypertension [Unknown]
